FAERS Safety Report 6836936-1 (Version None)
Quarter: 2010Q3

REPORT INFORMATION
  Report Type: 
  Country: None (occurrence: None)
  Receive Date: 20100708
  Receipt Date: 20100622
  Transmission Date: 20110219
  Serious: Yes (Life-Threatening, Hospitalization, Other)
  Sender: FDA-Public Use
  Company Number: APP201000546

PATIENT
  Age: 43 Year
  Sex: Female
  Weight: 90.7194 kg

DRUGS (2)
  1. CEFOTETAN [Suspect]
     Indication: PRODUCT USED FOR UNKNOWN INDICATION
     Dosage: TOTAL OF 3 DOSES
     Dates: start: 20091020, end: 20091021
  2. PROPRANOLOL [Concomitant]

REACTIONS (2)
  - HAEMOLYTIC ANAEMIA [None]
  - HEPATIC FAILURE [None]
